FAERS Safety Report 5321765-0 (Version None)
Quarter: 2007Q2

REPORT INFORMATION
  Report Type: 
  Country: None (occurrence: None)
  Receive Date: 20070510
  Receipt Date: 20070423
  Transmission Date: 20071010
  Serious: Yes (Other)
  Sender: FDA-Public Use
  Company Number: PHBS2007DK07344

PATIENT
  Sex: Male

DRUGS (1)
  1. RITALIN UNO [Suspect]
     Dosage: 30 MG + 20 MG/DAY

REACTIONS (1)
  - RAYNAUD'S PHENOMENON [None]
